FAERS Safety Report 25298625 (Version 3)
Quarter: 2025Q2

REPORT INFORMATION
  Report Type: Spontaneous
  Country: IL (occurrence: IL)
  Receive Date: 20250512
  Receipt Date: 20250619
  Transmission Date: 20250716
  Serious: Yes (Disabling, Other)
  Sender: TEVA
  Company Number: IL-TEVA-VS-3328445

PATIENT
  Sex: Male

DRUGS (4)
  1. OFLOXACIN [Suspect]
     Active Substance: OFLOXACIN
     Indication: Infection
     Dosage: 200 X 2. A DAY. I TOOK IT FOR 6.5 DAYS, 2600 MG TOTAL
     Route: 065
     Dates: start: 202502, end: 2025
  2. IBUPROFEN [Suspect]
     Active Substance: IBUPROFEN
     Indication: Product used for unknown indication
     Route: 065
     Dates: start: 202502, end: 2025
  3. VITAMIN C [Concomitant]
     Active Substance: ASCORBIC ACID
     Indication: Product used for unknown indication
  4. MAGNESIUM GLYCINATE [Concomitant]
     Active Substance: MAGNESIUM GLYCINATE
     Indication: Product used for unknown indication
     Route: 065

REACTIONS (9)
  - Panic attack [Unknown]
  - Anxiety [Unknown]
  - Pain in extremity [Unknown]
  - Abdominal pain upper [Unknown]
  - Drug interaction [Unknown]
  - Gait inability [Unknown]
  - Vitreous floaters [Unknown]
  - Insomnia [Recovering/Resolving]
  - Mitochondrial toxicity [Unknown]

NARRATIVE: CASE EVENT DATE: 20250101
